FAERS Safety Report 5799380-4 (Version None)
Quarter: 2008Q3

REPORT INFORMATION
  Report Type: 
  Country: None (occurrence: None)
  Receive Date: 20080703
  Receipt Date: 20080626
  Transmission Date: 20090109
  Serious: Yes (Death, Hospitalization)
  Sender: FDA-Public Use
  Company Number: GB-PFIZER INC-2008054135

PATIENT
  Age: 48 Year
  Sex: Male

DRUGS (4)
  1. ATORVASTATIN [Suspect]
  2. SERTRALINE [Suspect]
  3. QUETIAPINE FUMARATE [Suspect]
     Route: 048
  4. ALL OTHER THERAPEUTIC PRODUCTS [Suspect]

REACTIONS (2)
  - HEPATIC FAILURE [None]
  - HEPATIC STEATOSIS [None]
